FAERS Safety Report 11254725 (Version 1)
Quarter: 2015Q3

REPORT INFORMATION
  Report Type: Spontaneous
  Country: AT (occurrence: AT)
  Receive Date: 20150709
  Receipt Date: 20150709
  Transmission Date: 20151125
  Serious: Yes (Life-Threatening, Hospitalization, Other)
  Sender: FDA-Public Use
  Company Number: AT-PFIZER INC-2015222147

PATIENT
  Age: 33 Month
  Sex: Female
  Weight: 12.9 kg

DRUGS (2)
  1. UNASYN [Suspect]
     Active Substance: AMPICILLIN SODIUM\SULBACTAM SODIUM
     Indication: NEUTROPENIA
     Dosage: 650 MG, UNK
     Route: 042
     Dates: start: 20150613, end: 20150617
  2. UNASYN [Suspect]
     Active Substance: AMPICILLIN SODIUM\SULBACTAM SODIUM
     Indication: ANTIBIOTIC THERAPY

REACTIONS (4)
  - Transient psychosis [Recovered/Resolved]
  - Hospitalisation [Recovered/Resolved]
  - Intensive care [Recovered/Resolved]
  - Anaphylactic shock [Recovered/Resolved]

NARRATIVE: CASE EVENT DATE: 20150617
